FAERS Safety Report 8251556-2 (Version None)
Quarter: 2012Q1

REPORT INFORMATION
  Report Type: 
  Country: None (occurrence: None)
  Receive Date: 20120322
  Receipt Date: 20111222
  Transmission Date: 20120608
  Serious: Yes (Hospitalization)
  Sender: FDA-Public Use
  Company Number: UTC-013873

PATIENT
  Age: 32 Year
  Sex: Female
  Weight: 88.6 kg

DRUGS (4)
  1. LETAIRIS [Concomitant]
  2. REVATIO [Concomitant]
  3. COUMADIN [Concomitant]
  4. TYVASO [Suspect]
     Indication: PULMONARY ARTERIAL HYPERTENSION
     Dosage: 144 MCG (36 MCG, 4 IN 1 D), INHALATION
     Route: 055
     Dates: start: 20111110

REACTIONS (1)
  - PNEUMONIA [None]
